FAERS Safety Report 5233053-1 (Version None)
Quarter: 2007Q1

REPORT INFORMATION
  Report Type: 
  Country: None (occurrence: None)
  Receive Date: 20070207
  Receipt Date: 20070131
  Transmission Date: 20070707
  Serious: Yes (Other)
  Sender: FDA-Public Use
  Company Number: US-PFIZER INC-2007008928

PATIENT
  Sex: Female

DRUGS (4)
  1. CORTEF [Suspect]
     Indication: ADDISON'S DISEASE
     Dosage: DAILY DOSE:27.5MG
     Route: 048
  2. FLORINEF [Concomitant]
  3. PREMPRO [Concomitant]
  4. ANTITHYROID PREPARATIONS [Concomitant]

REACTIONS (1)
  - HYPOGLYCAEMIA [None]
